FAERS Safety Report 21961577 (Version 1)
Quarter: 2023Q1

REPORT INFORMATION
  Report Type: Spontaneous
  Country: US (occurrence: None)
  Receive Date: 20230204
  Receipt Date: 20230204
  Transmission Date: 20230418
  Serious: Yes (Other)
  Sender: FDA-Public Use
  Company Number: None

PATIENT
  Age: 54 Year
  Sex: Female
  Weight: 83.7 kg

DRUGS (16)
  1. CARBOXYMETHYLCELLULOSE SODIUM [Suspect]
     Active Substance: CARBOXYMETHYLCELLULOSE SODIUM
     Indication: Dry eye
     Dates: start: 20221101, end: 20221101
  2. ADDERALL [Concomitant]
     Active Substance: AMPHETAMINE ASPARTATE\AMPHETAMINE SULFATE\DEXTROAMPHETAMINE SACCHARATE\DEXTROAMPHETAMINE SULFATE
  3. DULOXETINE [Concomitant]
     Active Substance: DULOXETINE
  4. Vitamin and mineral supplements [Concomitant]
  5. VITAMIN B1 [Concomitant]
     Active Substance: THIAMINE HYDROCHLORIDE
  6. Nettle Tea [Concomitant]
  7. Black walnut and wormwood extract [Concomitant]
  8. NAC [Concomitant]
  9. AMINO ACIDS [Concomitant]
     Active Substance: AMINO ACIDS
  10. R-ALPHA LIPOIC ACID [Concomitant]
  11. BERBERINE [Concomitant]
     Active Substance: BERBERINE
  12. KRILL OIL [Concomitant]
     Active Substance: DIETARY SUPPLEMENT\KRILL OIL
  13. DIM [Concomitant]
  14. 7-KETO [Concomitant]
  15. Adrenal Glandular + ADAPTOGENS [Concomitant]
  16. Ptobiotics [Concomitant]

REACTIONS (6)
  - Product contamination [None]
  - Eye pain [None]
  - Feeling abnormal [None]
  - Conjunctivitis [None]
  - Eye infection [None]
  - Recalled product administered [None]

NARRATIVE: CASE EVENT DATE: 20221101
